FAERS Safety Report 7905131-7 (Version None)
Quarter: 2011Q4

REPORT INFORMATION
  Report Type: 
  Country: None (occurrence: None)
  Receive Date: 20111109
  Receipt Date: 20111102
  Transmission Date: 20120403
  Serious: Yes (Hospitalization, Other)
  Sender: FDA-Public Use
  Company Number: CHPA2011US015471

PATIENT
  Age: 82 Year
  Sex: Female

DRUGS (3)
  1. VICODIN [Suspect]
     Indication: TOOTHACHE
     Dosage: UNK , UNK
     Dates: start: 20111101
  2. BENEFIBER W/ WHEAT DEXTRIN [Suspect]
     Indication: DIVERTICULUM
     Dosage: 1 TSP, TID
     Route: 048
     Dates: start: 20100101
  3. COREG [Suspect]
     Indication: CARDIOVASCULAR DISORDER
     Dosage: UNK

REACTIONS (6)
  - PAIN [None]
  - MYOCARDIAL INFARCTION [None]
  - FLUSHING [None]
  - TOOTH INFECTION [None]
  - DIZZINESS [None]
  - OFF LABEL USE [None]
